FAERS Safety Report 10194021 (Version 1)
Quarter: 2014Q2

REPORT INFORMATION
  Report Type: Spontaneous
  Country: US (occurrence: US)
  Receive Date: 20140524
  Receipt Date: 20140524
  Transmission Date: 20141212
  Serious: No
  Sender: FDA-Public Use
  Company Number: US-SANOFI-AVENTIS-2013SA051311

PATIENT
  Age: 74 Year
  Sex: Female

DRUGS (3)
  1. LANTUS SOLOSTAR [Suspect]
     Indication: TYPE 2 DIABETES MELLITUS
     Dosage: FROM 10 TO 13 UNITS 2 DAYS AGO DOSE:13 UNIT(S)
     Route: 051
     Dates: start: 20130506
  2. SOLOSTAR [Suspect]
     Indication: TYPE 2 DIABETES MELLITUS
     Dates: start: 20130506
  3. ANTIBIOTICS [Concomitant]
     Indication: CELLULITIS
     Dates: start: 201304

REACTIONS (1)
  - Cellulitis [Not Recovered/Not Resolved]
